FAERS Safety Report 14221044 (Version 2)
Quarter: 2017Q4

REPORT INFORMATION
  Report Type: Report from Study
  Country: None (occurrence: LB)
  Receive Date: 20171124
  Receipt Date: 20171213
  Transmission Date: 20180321
  Serious: Yes (Hospitalization)
  Sender: FDA-Public Use
  Company Number: LB-ABBVIE-17K-093-2174209-00

PATIENT
  Age: 61 Year
  Sex: Male
  Weight: 85 kg

DRUGS (4)
  1. AMLOR [Concomitant]
     Active Substance: AMLODIPINE BESYLATE
     Indication: PRODUCT USED FOR UNKNOWN INDICATION
  2. HUMIRA [Suspect]
     Active Substance: ADALIMUMAB
     Indication: PSORIASIS
     Route: 058
     Dates: start: 201706, end: 20170709
  3. LASIX [Concomitant]
     Active Substance: FUROSEMIDE
     Indication: PRODUCT USED FOR UNKNOWN INDICATION
  4. TRITACE [Concomitant]
     Active Substance: RAMIPRIL
     Indication: PRODUCT USED FOR UNKNOWN INDICATION

REACTIONS (8)
  - Swelling [Recovered/Resolved]
  - Blood creatinine increased [Unknown]
  - Red blood cell count decreased [Unknown]
  - Blood urea increased [Unknown]
  - Haemoglobin decreased [Unknown]
  - Low density lipoprotein increased [Unknown]
  - Rash [Recovered/Resolved]
  - Haematocrit decreased [Unknown]

NARRATIVE: CASE EVENT DATE: 201706
